FAERS Safety Report 12610272 (Version 1)
Quarter: 2016Q3

REPORT INFORMATION
  Report Type: Spontaneous
  Country: GB (occurrence: GB)
  Receive Date: 20160801
  Receipt Date: 20160801
  Transmission Date: 20161109
  Serious: Yes (Other)
  Sender: FDA-Public Use
  Company Number: GB-PFIZER INC-2016358326

PATIENT
  Sex: Male
  Weight: 4 kg

DRUGS (5)
  1. CLINDAMYCIN PHOSPHATE. [Suspect]
     Active Substance: CLINDAMYCIN PHOSPHATE
     Indication: MASTITIS
     Dosage: 900 MG, UNK
     Route: 063
     Dates: start: 20160325, end: 20160327
  2. METRONIDAZOLE. [Concomitant]
     Active Substance: METRONIDAZOLE
     Indication: MASTITIS
     Dosage: 500 MG, UNK
     Route: 063
     Dates: start: 20160325, end: 20160327
  3. PARACETAMOL [Concomitant]
     Active Substance: ACETAMINOPHEN
     Indication: MASTITIS
     Dosage: 1 G, UNK
     Route: 063
     Dates: start: 20160325, end: 20160328
  4. CLINDAMYCIN HCL [Suspect]
     Active Substance: CLINDAMYCIN HYDROCHLORIDE
     Indication: MASTITIS
     Dosage: 300 MG, UNK
     Route: 063
     Dates: start: 20160328, end: 20160404
  5. IBUPROFEN. [Concomitant]
     Active Substance: IBUPROFEN
     Indication: MASTITIS
     Dosage: 400 MG, UNK
     Route: 063
     Dates: start: 20160325, end: 20160328

REACTIONS (3)
  - Exposure during breast feeding [Recovered/Resolved]
  - Diarrhoea neonatal [Recovered/Resolved]
  - Haematochezia [Recovered/Resolved]

NARRATIVE: CASE EVENT DATE: 20160325
